FAERS Safety Report 5249134-2 (Version None)
Quarter: 2007Q1

REPORT INFORMATION
  Report Type: 
  Country: None (occurrence: None)
  Receive Date: 20070223
  Receipt Date: 20070208
  Transmission Date: 20070707
  Serious: Yes (Hospitalization, Other)
  Sender: FDA-Public Use
  Company Number: 2007RR-05719

PATIENT
  Sex: Female

DRUGS (3)
  1. SEROXAT (PAROXETINE HYDROCHLORIDE; PAROXETINE HYDROCHLORIDE HEMIHYDRAT [Suspect]
     Dosage: SEE IMAGE
     Dates: start: 20010706
  2. PARACETAMOL (ACETAMINOPHEN/PARACETAMOL) UNKNOWN [Suspect]
  3. ALCOHOL (ETHANOL) [Suspect]

REACTIONS (6)
  - DRUG WITHDRAWAL SYNDROME [None]
  - FEELING ABNORMAL [None]
  - NAUSEA [None]
  - OVERDOSE [None]
  - PARANOIA [None]
  - SUICIDE ATTEMPT [None]
